FAERS Safety Report 25500137 (Version 1)
Quarter: 2025Q3

REPORT INFORMATION
  Report Type: Report from Study
  Country: CA (occurrence: CA)
  Receive Date: 20250701
  Receipt Date: 20250701
  Transmission Date: 20251021
  Serious: Yes (Other)
  Sender: SANDOZ
  Company Number: CA-002147023-NVSC2022CA196979

PATIENT
  Sex: Female

DRUGS (3)
  1. PIRFENIDONE [Suspect]
     Active Substance: PIRFENIDONE
     Indication: Idiopathic pulmonary fibrosis
     Dosage: 2.5 MG, QD
     Route: 048
  2. PIRFENIDONE [Suspect]
     Active Substance: PIRFENIDONE
     Indication: Interstitial lung disease
  3. PIRFENIDONE [Suspect]
     Active Substance: PIRFENIDONE
     Indication: Pulmonary fibrosis

REACTIONS (13)
  - Bladder cancer [Unknown]
  - Pneumonia [Unknown]
  - Hypoventilation [Unknown]
  - Pneumonia aspiration [Unknown]
  - Pelvic fracture [Unknown]
  - Interstitial lung disease [Unknown]
  - Disease progression [Unknown]
  - Blood carbon monoxide decreased [Unknown]
  - Respiratory gas exchange disorder [Unknown]
  - Head discomfort [Unknown]
  - Cough [Unknown]
  - Lung diffusion test decreased [Unknown]
  - COVID-19 [Unknown]
